FAERS Safety Report 19535102 (Version 1)
Quarter: 2021Q3

REPORT INFORMATION
  Report Type: Other
  Country: CA (occurrence: CA)
  Receive Date: 20210714
  Receipt Date: 20210714
  Transmission Date: 20211014
  Serious: Yes (Hospitalization, Other)
  Sender: FDA-Public Use
  Company Number: CA-APOTEX-2021AP017401

PATIENT
  Age: 61 Year
  Sex: Male

DRUGS (3)
  1. DIPHENHYDRAMINE. [Suspect]
     Active Substance: DIPHENHYDRAMINE
     Indication: SLEEP DISORDER
     Dosage: UNK
     Route: 065
  2. HYDROMORPHONE [Concomitant]
     Active Substance: HYDROMORPHONE
     Indication: PRODUCT USED FOR UNKNOWN INDICATION
     Dosage: UNK
     Route: 048
  3. DIPHENHYDRAMINE. [Suspect]
     Active Substance: DIPHENHYDRAMINE
     Indication: ANXIOLYTIC THERAPY

REACTIONS (8)
  - Overdose [Unknown]
  - Autonomic nervous system imbalance [Unknown]
  - Drug abuse [Unknown]
  - Withdrawal syndrome [Unknown]
  - Hyperhidrosis [Unknown]
  - Hypertonia [Unknown]
  - Sinus tachycardia [Unknown]
  - Delirium [Unknown]
